FAERS Safety Report 23940836 (Version 1)
Quarter: 2024Q2

REPORT INFORMATION
  Report Type: Spontaneous
  Country: US (occurrence: US)
  Receive Date: 20240605
  Receipt Date: 20240605
  Transmission Date: 20240716
  Serious: Yes (Hospitalization)
  Sender: FDA-Public Use
  Company Number: US-MLMSERVICE-20240515-PI063258-00329-1

PATIENT
  Age: 67 Year
  Sex: Female

DRUGS (21)
  1. VANCOMYCIN [Suspect]
     Active Substance: VANCOMYCIN
     Indication: Antibiotic therapy
     Dosage: RECEIVED ONE DOSE
  2. HALOPERIDOL [Concomitant]
     Active Substance: HALOPERIDOL
  3. SUGAMMADEX SODIUM [Concomitant]
     Active Substance: SUGAMMADEX SODIUM
  4. NOREPINEPHRINE [Concomitant]
     Active Substance: NOREPINEPHRINE\NOREPINEPHRINE BITARTRATE
  5. MIDAZOLAM [Concomitant]
     Active Substance: MIDAZOLAM
  6. PROTAMINE SULFATE [Concomitant]
     Active Substance: PROTAMINE SULFATE
  7. VITAMIN D [Concomitant]
     Active Substance: VITAMIN D NOS
  8. EPHEDRINE [Concomitant]
     Active Substance: EPHEDRINE
  9. MANNITOL [Concomitant]
     Active Substance: MANNITOL
  10. HEPARIN [Concomitant]
     Active Substance: HEPARIN SODIUM
  11. SIMVASTATIN [Concomitant]
     Active Substance: SIMVASTATIN
  12. PHENYLEPHRINE [Concomitant]
     Active Substance: PHENYLEPHRINE HYDROCHLORIDE
  13. CEFUROXIME [Concomitant]
     Active Substance: CEFUROXIME
  14. FAMOTIDINE [Concomitant]
     Active Substance: FAMOTIDINE
  15. FENTANYL [Concomitant]
     Active Substance: FENTANYL\FENTANYL CITRATE
  16. CALCIUM [Concomitant]
     Active Substance: CALCIUM
  17. PROPOFOL [Concomitant]
     Active Substance: PROPOFOL
  18. HYDROMORPHONE [Concomitant]
     Active Substance: HYDROMORPHONE
  19. ASPIRIN [Concomitant]
     Active Substance: ASPIRIN
  20. BUPIVACAINE [Concomitant]
     Active Substance: BUPIVACAINE
  21. ROCURONIUM [Concomitant]
     Active Substance: ROCURONIUM BROMIDE

REACTIONS (1)
  - Fanconi syndrome [Unknown]
